FAERS Safety Report 19921455 (Version 4)
Quarter: 2022Q1

REPORT INFORMATION
  Report Type: Report from Study
  Country: CN (occurrence: None)
  Receive Date: 20211005
  Receipt Date: 20220118
  Transmission Date: 20220424
  Serious: Yes (Death, Hospitalization)
  Sender: FDA-Public Use
  Company Number: CN-ROCHE-2909821

PATIENT
  Age: 69 Year
  Sex: Male
  Weight: 55 kg

DRUGS (2)
  1. ATEZOLIZUMAB [Suspect]
     Active Substance: ATEZOLIZUMAB
     Indication: Non-small cell lung cancer
     Dosage: ON 23/JUL/2021, HE RECEIVED MOST RECENT DOSE OF ATEZOLIZUMAB (1200 MG) PRIOR TO ONSET OF SERIOUS ADV
     Route: 041
     Dates: start: 20170427
  2. ORNITHINE ASPARTATE [Concomitant]
     Active Substance: ORNITHINE ASPARTATE
     Indication: Liver injury
     Dates: start: 20210421

REACTIONS (1)
  - Dyspnoea [Fatal]

NARRATIVE: CASE EVENT DATE: 20210829
